FAERS Safety Report 17292996 (Version 1)
Quarter: 2020Q1

REPORT INFORMATION
  Report Type: Spontaneous
  Country: US (occurrence: US)
  Receive Date: 20200121
  Receipt Date: 20200121
  Transmission Date: 20200409
  Serious: Yes (Other)
  Sender: FDA-Public Use
  Company Number: US-PFIZER INC-2019557396

PATIENT
  Age: 87 Year
  Sex: Male
  Weight: 73.92 kg

DRUGS (9)
  1. BUMEX [Concomitant]
     Active Substance: BUMETANIDE
     Dosage: 2 MG, DAILY
     Route: 048
  2. NITROSTAT [Concomitant]
     Active Substance: NITROGLYCERIN
     Indication: CHEST PAIN
     Dosage: 0.4 MG, AS NEEDED (DISSOLVE ONE TABLET UNDER THE TONGUE EVERY 5 MINUTES FOR UP TO 3 DOSES AS NEEDED)
     Route: 060
  3. TOPROL XL [Concomitant]
     Active Substance: METOPROLOL SUCCINATE
     Dosage: (TAKE 0.5 TABLETS BY MOUTH DAILY)
     Route: 048
  4. PERCOCET [Concomitant]
     Active Substance: ACETAMINOPHEN\OXYCODONE HYDROCHLORIDE
     Indication: PAIN
     Dosage: OXYCODONE HYDROCHLORIDE 7.5 MG, ACETAMINOPHEN 325 MG/ TAKE 0.5-1 TABLETS BY MOUTH EVERY 3 HOUR
     Route: 048
  5. VYNDAQEL [Suspect]
     Active Substance: TAFAMIDIS MEGLUMINE
     Indication: CARDIAC AMYLOIDOSIS
     Dosage: 80 MG, DAILY
     Route: 048
     Dates: start: 20190730, end: 20191207
  6. CORDARONE [Concomitant]
     Active Substance: AMIODARONE HYDROCHLORIDE
     Dosage: 200 MG, DAILY
     Route: 048
  7. CRESTOR [Concomitant]
     Active Substance: ROSUVASTATIN CALCIUM
     Dosage: 10 MG, DAILY
     Route: 048
  8. XARELTO [Concomitant]
     Active Substance: RIVAROXABAN
     Dosage: 15 MG, 1X/DAY
     Route: 048
  9. LIDODERM [Concomitant]
     Active Substance: LIDOCAINE
     Dosage: APP 1 PA EXT TO THE SKIN QD (ONCE A DAY) UTD

REACTIONS (5)
  - Urine output decreased [Recovered/Resolved]
  - Disease progression [Unknown]
  - Cardiac amyloidosis [Unknown]
  - Confusional state [Recovered/Resolved]
  - Oedema peripheral [Recovered/Resolved]

NARRATIVE: CASE EVENT DATE: 201912
